FAERS Safety Report 7462208-0 (Version None)
Quarter: 2011Q2

REPORT INFORMATION
  Report Type: 
  Country: None (occurrence: None)
  Receive Date: 20110506
  Receipt Date: 20110421
  Transmission Date: 20111010
  Serious: Yes (Hospitalization)
  Sender: FDA-Public Use
  Company Number: DE-BAYER-2011-015231

PATIENT
  Age: 74 Year
  Sex: Male
  Weight: 64 kg

DRUGS (16)
  1. BISOPROLOL FUMARATE [Concomitant]
     Indication: HYPERTENSION
     Dosage: 5 MG, QD
     Dates: start: 19900101
  2. TAMSULOSIN HCL [Concomitant]
     Indication: BENIGN PROSTATIC HYPERPLASIA
     Dosage: 0.4 MG, QD
     Dates: start: 20050101
  3. NOVO-PETRIN [Concomitant]
     Indication: URINARY TRACT PAIN
     Dosage: 2 X 20 DROPS, PRN
     Dates: start: 20101110
  4. TENOFOVIR DISOPROXIL FUMARATE [Concomitant]
     Indication: HEPATITIS B
     Dosage: 245 MG, QD
     Dates: start: 20100505
  5. AMOXICILLIN [Concomitant]
     Dosage: 500 MG, TID
     Dates: start: 20101226, end: 20101226
  6. ERYTHROMYCIN W/SULFISOXAZOLE [Concomitant]
     Indication: GASTRODUODENAL ULCER
     Dosage: 40 MG, QD
     Dates: start: 20090601, end: 20110117
  7. INSULIN [Concomitant]
     Indication: DIABETES MELLITUS
     Dosage: 14 IU, ACCORDING TO GLUCOSE MEASUREMENT
     Dates: start: 20100201
  8. METOCLOPRAMIDE HYDROCHLORIDE [Concomitant]
     Indication: PROPHYLAXIS AGAINST DIARRHOEA
     Dosage: 3 X 20 DROPS, PRN
     Dates: start: 20101025
  9. LEFAX [Concomitant]
     Indication: ABDOMINAL DISTENSION
     Dosage: 1-2 TABLETS, PRN
     Dates: start: 20101207
  10. AMOXICILLIN [Concomitant]
     Indication: TOOTH INFECTION
     Dosage: 500 MG, TID
     Dates: start: 20101222, end: 20101224
  11. METFORMIN [Concomitant]
     Indication: DIABETES MELLITUS
     Dosage: 1000 MG, BID
     Dates: start: 19960101, end: 20101227
  12. ACETYLSALICYLIC ACID [Concomitant]
     Indication: MYOCARDIAL INFARCTION
     Dosage: 100 MG, QD
     Dates: start: 19991001, end: 20101227
  13. SORAFENIB (RAF KINASE INHIBITOR) [Suspect]
     Indication: HEPATIC NEOPLASM MALIGNANT
     Dosage: 400 MG, BID
     Route: 048
     Dates: start: 20101025, end: 20110118
  14. LOPERAMIDE [Concomitant]
     Indication: DIARRHOEA
     Dosage: 2 MG, TID
     Dates: start: 20101110
  15. RAMIPRIL [Concomitant]
     Indication: HYPERTENSION
     Dosage: 5 MG, QD
     Dates: start: 19900101
  16. LOPERAMIDE [Concomitant]
     Indication: PROPHYLAXIS AGAINST DIARRHOEA
     Dosage: UNK UNK, PRN
     Dates: start: 20101025, end: 20101109

REACTIONS (1)
  - GASTRIC ULCER [None]
